FAERS Safety Report 6763751-X (Version None)
Quarter: 2010Q2

REPORT INFORMATION
  Report Type: 
  Country: None (occurrence: None)
  Receive Date: 20100610
  Receipt Date: 20100527
  Transmission Date: 20101027
  Serious: Yes (Hospitalization)
  Sender: FDA-Public Use
  Company Number: BR-GENZYME-POMP-1000952

PATIENT
  Sex: Female
  Weight: 11.8 kg

DRUGS (1)
  1. MYOZYME [Suspect]
     Indication: GLYCOGEN STORAGE DISEASE TYPE II
     Dosage: UNK UNK, UNK
     Route: 042
     Dates: start: 20081212

REACTIONS (7)
  - BRONCHOSPASM [None]
  - DYSPHAGIA [None]
  - GASTROINTESTINAL MOTILITY DISORDER [None]
  - GASTROOESOPHAGEAL REFLUX DISEASE [None]
  - HYPOTONIA [None]
  - PYREXIA [None]
  - RESPIRATORY DISORDER [None]
